FAERS Safety Report 12298800 (Version 5)
Quarter: 2016Q3

REPORT INFORMATION
  Report Type: Spontaneous
  Country: DE (occurrence: DE)
  Receive Date: 20160425
  Receipt Date: 20160926
  Transmission Date: 20161109
  Serious: Yes (Hospitalization)
  Sender: FDA-Public Use
  Company Number: DE-BIOGEN-2016BI00225922

PATIENT
  Age: 0 Year
  Sex: Female
  Weight: 2.23 kg

DRUGS (2)
  1. TYSABRI [Suspect]
     Active Substance: NATALIZUMAB
     Indication: MATERNAL EXPOSURE TIMING UNSPECIFIED
     Route: 064
     Dates: start: 20141219, end: 20150728
  2. VITAMIN K [Concomitant]
     Active Substance: PHYTONADIONE
     Indication: PRODUCT USED FOR UNKNOWN INDICATION
     Route: 065

REACTIONS (7)
  - Fluid intake reduced [Recovered/Resolved]
  - Small for dates baby [Recovered/Resolved]
  - Low birth weight baby [Unknown]
  - Neonatal infection [Recovered/Resolved]
  - Foetal exposure timing unspecified [Unknown]
  - Temperature regulation disorder [Recovered/Resolved]
  - Eyelid ptosis [Recovered/Resolved]

NARRATIVE: CASE EVENT DATE: 20150728
